FAERS Safety Report 19077136 (Version 1)
Quarter: 2021Q1

REPORT INFORMATION
  Report Type: Spontaneous
  Country: US (occurrence: US)
  Receive Date: 20210331
  Receipt Date: 20210331
  Transmission Date: 20210420
  Serious: No
  Sender: FDA-Public Use
  Company Number: US-GLAXOSMITHKLINE-USCH2021016195

PATIENT
  Age: 67 Year
  Sex: Male

DRUGS (1)
  1. VOLTAREN ARTHRITIS PAIN [Suspect]
     Active Substance: DICLOFENAC SODIUM
     Indication: ARTHRITIS
     Dosage: UNK
     Dates: start: 20210324, end: 20210324

REACTIONS (6)
  - Peripheral swelling [Unknown]
  - Pruritus [Unknown]
  - Scratch [Unknown]
  - Scab [Unknown]
  - Product residue present [Unknown]
  - Medication error [Unknown]

NARRATIVE: CASE EVENT DATE: 20210324
